FAERS Safety Report 11690021 (Version 1)
Quarter: 2015Q4

REPORT INFORMATION
  Report Type: Spontaneous
  Country: US (occurrence: US)
  Receive Date: 20151102
  Receipt Date: 20151102
  Transmission Date: 20160304
  Serious: No
  Sender: FDA-Public Use
  Company Number: US-WATSON-2014-26611

PATIENT
  Age: 61 Year
  Sex: Male
  Weight: 147 kg

DRUGS (1)
  1. RAPAFLO [Suspect]
     Active Substance: SILODOSIN
     Indication: POLLAKIURIA
     Dosage: 8 MG, DAILY
     Route: 048
     Dates: start: 201404, end: 201405

REACTIONS (1)
  - Drug ineffective [Recovered/Resolved]

NARRATIVE: CASE EVENT DATE: 201404
